FAERS Safety Report 6998679-3 (Version None)
Quarter: 2010Q3

REPORT INFORMATION
  Report Type: 
  Country: None (occurrence: None)
  Receive Date: 20100920
  Receipt Date: 20070709
  Transmission Date: 20110219
  Serious: Yes (Other)
  Sender: FDA-Public Use
  Company Number: US-ASTRAZENECA-2006UW21997

PATIENT
  Age: 16355 Day
  Sex: Male
  Weight: 93.9 kg

DRUGS (11)
  1. SEROQUEL [Suspect]
     Indication: SCHIZOPHRENIA
     Route: 048
     Dates: start: 19900101
  2. SEROQUEL [Suspect]
     Dosage: 200-400 MG
     Route: 048
     Dates: start: 19990803
  3. RISPERDAL [Concomitant]
     Dates: start: 19970101, end: 19980101
  4. ZYPREXA [Concomitant]
  5. XANAX [Concomitant]
     Dosage: 1.01-1.5 MG
     Dates: start: 19980714
  6. ZIAC [Concomitant]
     Dosage: 2.5-20 MG
     Route: 048
     Dates: start: 19991207, end: 20011009
  7. ZESTORETIC [Concomitant]
     Dosage: 10/12.5 - 40/25.0
     Route: 048
     Dates: start: 20011009
  8. SYNTHROID [Concomitant]
     Route: 048
     Dates: start: 20011114
  9. CARDIZEM [Concomitant]
     Route: 048
     Dates: start: 20061127
  10. AMARYL [Concomitant]
     Route: 048
     Dates: start: 20061127
  11. PAXIL [Concomitant]
     Route: 048
     Dates: start: 20061127

REACTIONS (6)
  - BLOOD GLUCOSE ABNORMAL [None]
  - DIABETES MELLITUS [None]
  - DIABETES MELLITUS INADEQUATE CONTROL [None]
  - HYPERTHYROIDISM [None]
  - HYPOTHYROIDISM [None]
  - TYPE 2 DIABETES MELLITUS [None]
